FAERS Safety Report 9615384 (Version 1)
Quarter: 2013Q4

REPORT INFORMATION
  Report Type: Spontaneous
  Country: US (occurrence: US)
  Receive Date: 20131011
  Receipt Date: 20131011
  Transmission Date: 20140711
  Serious: No
  Sender: FDA-Public Use
  Company Number: US-PURDUE-USA-2013-0098463

PATIENT
  Sex: Female

DRUGS (1)
  1. BUTRANS [Suspect]
     Indication: PRODUCT USED FOR UNKNOWN INDICATION
     Dosage: 10 MCG, UNK
     Route: 062

REACTIONS (6)
  - Drug withdrawal syndrome [Unknown]
  - Muscle twitching [Unknown]
  - Tremor [Unknown]
  - Insomnia [Unknown]
  - Hyperhidrosis [Unknown]
  - Muscle spasms [Unknown]
